FAERS Safety Report 17816113 (Version 2)
Quarter: 2020Q2

REPORT INFORMATION
  Report Type: Spontaneous
  Country: JP (occurrence: JP)
  Receive Date: 20200522
  Receipt Date: 20200605
  Transmission Date: 20200714
  Serious: Yes (Hospitalization)
  Sender: FDA-Public Use
  Company Number: JP-TEVA-2020-JP-1239453

PATIENT
  Age: 69 Year
  Sex: Male

DRUGS (7)
  1. FLUOROURACIL. [Suspect]
     Active Substance: FLUOROURACIL
     Indication: COLON CANCER METASTATIC
     Dosage: AS A PART OF FOLFIRI (27 COURSES) AND MFOLFOX6 (2 COURSES)
     Route: 065
  2. OXALIPLATIN. [Suspect]
     Active Substance: OXALIPLATIN
     Indication: COLON CANCER METASTATIC
     Dosage: AS A PART OF CAPEOX (9 COURSES) AND MFOLFOX6 (2 COURSES)
     Route: 065
  3. CAPECITABINE. [Suspect]
     Active Substance: CAPECITABINE
     Indication: COLON CANCER METASTATIC
     Dosage: 9 COURSES
     Route: 065
  4. FOLINIC ACID [Concomitant]
     Active Substance: LEUCOVORIN
     Indication: COLON CANCER METASTATIC
     Dosage: AS A PART OF FOLFIRI (27 COURSES) AND MFOLFOX6 (2 COURSES)
     Route: 065
  5. BEVACIZUMAB. [Suspect]
     Active Substance: BEVACIZUMAB
     Indication: COLON CANCER METASTATIC
     Dosage: 9 COURSES ALONG WITH CAPEOX REGIMEN AND 2 COURSES ALONG WITH MFOLFOX6 REGIMEN
     Route: 065
  6. IRINOTECAN [Suspect]
     Active Substance: IRINOTECAN
     Indication: COLON CANCER METASTATIC
     Dosage: AS A PART OF FOLFIRI (27 COURSES)
     Route: 065
  7. PANITUMUMAB [Suspect]
     Active Substance: PANITUMUMAB
     Indication: COLON CANCER METASTATIC
     Dosage: 29 COURSES ALONG WITH FOLFIRI
     Route: 065

REACTIONS (2)
  - Venoocclusive liver disease [Unknown]
  - Thrombocytopenia [Recovered/Resolved]
